FAERS Safety Report 17967558 (Version 2)
Quarter: 2020Q3

REPORT INFORMATION
  Report Type: Report from Study
  Country: US (occurrence: US)
  Receive Date: 20200701
  Receipt Date: 20200726
  Transmission Date: 20201103
  Serious: Yes (Hospitalization, Other)
  Sender: FDA-Public Use
  Company Number: US-GILEAD-2020-0477793

PATIENT
  Age: 5 Year
  Sex: Male

DRUGS (20)
  1. DOCUSATE SODIUM. [Concomitant]
     Active Substance: DOCUSATE SODIUM
  2. BOOST [Concomitant]
     Active Substance: DIETARY SUPPLEMENT
  3. ERYTHROMYCIN ETHYL SUCCINATE [ERYTHROMYCIN ETHYLSUCCINATE] [Concomitant]
  4. LEVOFLOXACIN. [Concomitant]
     Active Substance: LEVOFLOXACIN
  5. LORATADINE. [Concomitant]
     Active Substance: LORATADINE
  6. VITAMIN D3 [Concomitant]
     Active Substance: CHOLECALCIFEROL
  7. CIPROFLOXACIN. [Concomitant]
     Active Substance: CIPROFLOXACIN
  8. OMEPRAZOLE. [Concomitant]
     Active Substance: OMEPRAZOLE
  9. ORKAMBI [Concomitant]
     Active Substance: IVACAFTOR\LUMACAFTOR
  10. TOBRAMYCIN. [Concomitant]
     Active Substance: TOBRAMYCIN
  11. IPRATROPIUM [Concomitant]
     Active Substance: IPRATROPIUM
  12. NYSTATIN. [Concomitant]
     Active Substance: NYSTATIN
  13. BACITRACIN. [Concomitant]
     Active Substance: BACITRACIN
  14. CREON [Concomitant]
     Active Substance: PANCRELIPASE AMYLASE\PANCRELIPASE LIPASE\PANCRELIPASE PROTEASE
  15. HYPERSAL [Concomitant]
     Active Substance: SODIUM CHLORIDE
  16. MIRALAX [Concomitant]
     Active Substance: POLYETHYLENE GLYCOL 3350
  17. QVAR [Concomitant]
     Active Substance: BECLOMETHASONE DIPROPIONATE
  18. AQUADEKS PEDIATRIC LIQUID [Concomitant]
     Active Substance: MINERALS\VITAMINS
  19. AZTREONAM LYSINE [Suspect]
     Active Substance: AZTREONAM LYSINE
     Indication: CYSTIC FIBROSIS
     Dosage: 1 VIAL  TID 28 DAYS ON 28 DAYS OFF
     Route: 055
     Dates: start: 20180406
  20. PULMOZYME [Concomitant]
     Active Substance: DORNASE ALFA

REACTIONS (3)
  - Off label use [Recovered/Resolved]
  - Cystic fibrosis respiratory infection suppression [Unknown]
  - Gastrostomy [Unknown]

NARRATIVE: CASE EVENT DATE: 20180406
